FAERS Safety Report 12566547 (Version 3)
Quarter: 2016Q4

REPORT INFORMATION
  Report Type: Spontaneous
  Country: US (occurrence: US)
  Receive Date: 20160718
  Receipt Date: 20161214
  Transmission Date: 20170207
  Serious: Yes (Hospitalization, Other)
  Sender: FDA-Public Use
  Company Number: US-SA-2016SA126181

PATIENT
  Age: 84 Year
  Sex: Female

DRUGS (35)
  1. TRAMADOL. [Concomitant]
     Active Substance: TRAMADOL
     Route: 065
  2. CALCIUM [Concomitant]
     Active Substance: CALCIUM
  3. ELIQUIS [Concomitant]
     Active Substance: APIXABAN
  4. GLYBURIDE. [Concomitant]
     Active Substance: GLYBURIDE
  5. SYMBICORT [Concomitant]
     Active Substance: BUDESONIDE\FORMOTEROL FUMARATE DIHYDRATE
  6. VITAMIN C [Concomitant]
     Active Substance: ASCORBIC ACID
  7. FOLIC ACID. [Concomitant]
     Active Substance: FOLIC ACID
  8. ATARAX [Concomitant]
     Active Substance: HYDROXYZINE\HYDROXYZINE HYDROCHLORIDE
     Route: 065
  9. SINGULAIR [Concomitant]
     Active Substance: MONTELUKAST SODIUM
  10. PULMICORT TURBUHALER [Concomitant]
     Active Substance: BUDESONIDE
  11. FISH OIL [Concomitant]
     Active Substance: FISH OIL
  12. TURMERIC [Concomitant]
     Active Substance: TURMERIC
  13. ZANTAC [Concomitant]
     Active Substance: RANITIDINE HYDROCHLORIDE
  14. CRESTOR [Concomitant]
     Active Substance: ROSUVASTATIN CALCIUM
     Route: 065
  15. DILTIAZEM. [Concomitant]
     Active Substance: DILTIAZEM
     Route: 065
  16. LIPASE [Concomitant]
     Active Substance: LIPASE
  17. GAMUNEX [Concomitant]
     Active Substance: HUMAN IMMUNOGLOBULIN G
  18. MULTAQ [Interacting]
     Active Substance: DRONEDARONE
     Indication: ATRIAL FIBRILLATION
     Route: 065
  19. DOXEPIN [Interacting]
     Active Substance: DOXEPIN
     Route: 065
  20. LEVOCARNITINE. [Concomitant]
     Active Substance: LEVOCARNITINE
  21. PEPCID [Concomitant]
     Active Substance: FAMOTIDINE
  22. PROTEASE [Concomitant]
     Active Substance: PROTEASE
  23. MIRALAX [Concomitant]
     Active Substance: POLYETHYLENE GLYCOL 3350
  24. VITAMIN B12 [Concomitant]
     Active Substance: CYANOCOBALAMIN
  25. COENZYME Q10 [Concomitant]
     Active Substance: UBIDECARENONE
  26. MULTAQ [Suspect]
     Active Substance: DRONEDARONE
     Indication: ATRIAL FIBRILLATION
     Route: 065
     Dates: start: 2014
  27. TOPROL XL [Concomitant]
     Active Substance: METOPROLOL SUCCINATE
     Route: 065
  28. ALBUTEROL. [Concomitant]
     Active Substance: ALBUTEROL
  29. MAGNESIUM CITRATE. [Concomitant]
     Active Substance: MAGNESIUM CITRATE
  30. VITAMIN B6 [Concomitant]
     Active Substance: PYRIDOXINE HYDROCHLORIDE
  31. DOCOSAHEXANOIC ACID [Concomitant]
  32. VITAMIN D3 [Concomitant]
     Active Substance: CHOLECALCIFEROL
  33. L-LYSINE [Concomitant]
     Active Substance: LYSINE
  34. AMYLASE [Concomitant]
     Active Substance: AMYLASE
  35. MILK THISTLE [Concomitant]
     Active Substance: MILK THISTLE

REACTIONS (12)
  - Renal failure [Unknown]
  - Hernia [Unknown]
  - Atrial fibrillation [Recovered/Resolved]
  - Decreased appetite [Unknown]
  - Weight decreased [Unknown]
  - Wheezing [Not Recovered/Not Resolved]
  - Blood cholesterol increased [Unknown]
  - Drug interaction [Unknown]
  - Dysgeusia [Unknown]
  - Pneumonia [Not Recovered/Not Resolved]
  - Respiratory disorder [Not Recovered/Not Resolved]
  - Insomnia [Not Recovered/Not Resolved]

NARRATIVE: CASE EVENT DATE: 2016
